FAERS Safety Report 19879837 (Version 1)
Quarter: 2021Q3

REPORT INFORMATION
  Report Type: Spontaneous
  Country: US (occurrence: US)
  Receive Date: 20210924
  Receipt Date: 20210924
  Transmission Date: 20211014
  Serious: Yes (Death, Life-Threatening, Other)
  Sender: FDA-Public Use
  Company Number: US-SA-2021SA312610

PATIENT
  Age: 24 Year
  Sex: Female

DRUGS (4)
  1. HUMALOG [Concomitant]
     Active Substance: INSULIN LISPRO
     Dosage: UNK
     Route: 065
  2. TOUJEO MAX [Suspect]
     Active Substance: INSULIN GLARGINE
     Indication: TYPE 2 DIABETES MELLITUS
     Dosage: 150 IU, Q12H
     Route: 065
     Dates: start: 2020
  3. VICTOZA [Concomitant]
     Active Substance: LIRAGLUTIDE
     Dosage: UNK
     Route: 065
  4. TOUJEO MAX [Suspect]
     Active Substance: INSULIN GLARGINE
     Indication: INSULIN RESISTANT DIABETES

REACTIONS (10)
  - Cerebrovascular accident [Unknown]
  - Myocardial infarction [Unknown]
  - Wrong technique in product usage process [Unknown]
  - Fine motor skill dysfunction [Unknown]
  - Inappropriate schedule of product administration [Unknown]
  - Hepatic failure [Fatal]
  - Impaired healing [Unknown]
  - Wound [Unknown]
  - Blood glucose increased [Unknown]
  - Illness [Fatal]

NARRATIVE: CASE EVENT DATE: 2020
